FAERS Safety Report 15738877 (Version 2)
Quarter: 2020Q1

REPORT INFORMATION
  Report Type: Report from Study
  Country: US (occurrence: US)
  Receive Date: 20181219
  Receipt Date: 20200121
  Transmission Date: 20200409
  Serious: Yes (Other)
  Sender: FDA-Public Use
  Company Number: US-ROCHE-2227628

PATIENT
  Age: 60 Year
  Sex: Female
  Weight: 68.1 kg

DRUGS (9)
  1. ZOFRAN [Concomitant]
     Active Substance: ONDANSETRON HYDROCHLORIDE
     Route: 065
  2. BENADRYL [Concomitant]
     Active Substance: DIPHENHYDRAMINE HYDROCHLORIDE
     Route: 065
  3. VITAMIN C [Concomitant]
     Active Substance: ASCORBIC ACID
  4. OCREVUS [Suspect]
     Active Substance: OCRELIZUMAB
     Indication: RELAPSING-REMITTING MULTIPLE SCLEROSIS
     Dosage: IN DEC 2018 AND JUN 2019, SHE RECOVERED OCRELIZUMAB
     Route: 042
     Dates: start: 201806
  5. MOTRIN [Concomitant]
     Active Substance: IBUPROFEN
     Indication: HIP FRACTURE
  6. TYLENOL EXTRA STRENGTH [Concomitant]
     Active Substance: ACETAMINOPHEN
     Indication: HIP FRACTURE
  7. OXYCODONE [Concomitant]
     Active Substance: OXYCODONE
  8. OCREVUS [Suspect]
     Active Substance: OCRELIZUMAB
     Indication: PRIMARY PROGRESSIVE MULTIPLE SCLEROSIS
  9. FOSAMAX [Concomitant]
     Active Substance: ALENDRONATE SODIUM
     Dosage: ONGOING: UNKNOWN
     Route: 065

REACTIONS (14)
  - Diarrhoea [Unknown]
  - Wrist fracture [Recovering/Resolving]
  - Hordeolum [Recovered/Resolved]
  - Head injury [Recovered/Resolved]
  - Fall [Unknown]
  - Nasopharyngitis [Not Recovered/Not Resolved]
  - Contusion [Recovering/Resolving]
  - Malaise [Recovered/Resolved]
  - Facial bones fracture [Recovered/Resolved]
  - Sinusitis [Not Recovered/Not Resolved]
  - Muscular weakness [Recovered/Resolved]
  - Fibrosis [Not Recovered/Not Resolved]
  - Colitis microscopic [Not Recovered/Not Resolved]
  - Colitis ischaemic [Recovered/Resolved]

NARRATIVE: CASE EVENT DATE: 201809
